FAERS Safety Report 6823158-3 (Version None)
Quarter: 2010Q3

REPORT INFORMATION
  Report Type: 
  Country: None (occurrence: None)
  Receive Date: 20100708
  Receipt Date: 20100622
  Transmission Date: 20110219
  Serious: Yes (Other)
  Sender: FDA-Public Use
  Company Number: DE-WYE-H15979710

PATIENT
  Age: 66 Year
  Sex: Female

DRUGS (3)
  1. PANTOZOL [Suspect]
     Indication: GASTRIC ULCER
     Route: 048
     Dates: start: 20100611, end: 20100617
  2. AMOXICILLIN [Suspect]
     Route: 048
     Dates: start: 20100611, end: 20100617
  3. CLARITHROMYCIN [Suspect]
     Indication: GASTRIC ULCER
     Route: 048
     Dates: start: 20100611, end: 20100617

REACTIONS (1)
  - RENAL FAILURE ACUTE [None]
